FAERS Safety Report 7787791-7 (Version None)
Quarter: 2011Q3

REPORT INFORMATION
  Report Type: 
  Country: None (occurrence: None)
  Receive Date: 20110930
  Receipt Date: 20110927
  Transmission Date: 20111222
  Serious: Yes (Other)
  Sender: FDA-Public Use
  Company Number: GB-BRISTOL-MYERS SQUIBB COMPANY-16098741

PATIENT
  Age: 32 Year
  Sex: Male

DRUGS (3)
  1. ETOPOSIDE [Suspect]
     Indication: TESTICULAR MALIGNANT TERATOMA STAGE III
     Dosage: IV ON DAY 1; DOSE:240MG/SQ.METER.ROA:ORAL,2DAY.
     Route: 042
     Dates: start: 20110101
  2. CARBOPLATIN [Suspect]
     Indication: TESTICULAR MALIGNANT TERATOMA STAGE III
     Dosage: 1DF=AUC 6
     Dates: start: 20110101
  3. LITHIUM [Suspect]

REACTIONS (1)
  - RENAL FAILURE ACUTE [None]
